FAERS Safety Report 24841464 (Version 2)
Quarter: 2025Q1

REPORT INFORMATION
  Report Type: Spontaneous
  Country: US (occurrence: US)
  Receive Date: 20250114
  Receipt Date: 20250115
  Transmission Date: 20250409
  Serious: No
  Sender: PFIZER
  Company Number: US-PFIZER INC-202500006567

PATIENT
  Age: 62 Year
  Sex: Male

DRUGS (10)
  1. CIBINQO [Suspect]
     Active Substance: ABROCITINIB
     Dosage: 100MG, TAKE 1 TABLET BY MOUTH DAILY AS DIRECTED
     Route: 048
     Dates: start: 20231011
  2. IBUPROFEN [Concomitant]
     Active Substance: IBUPROFEN
  3. EZETIMIBE [Concomitant]
     Active Substance: EZETIMIBE
  4. LISINOPRIL [Concomitant]
     Active Substance: LISINOPRIL
  5. ATORVASTATIN [Concomitant]
     Active Substance: ATORVASTATIN
  6. PREDNISONE [Concomitant]
     Active Substance: PREDNISONE
  7. LORAZEPAM [Concomitant]
     Active Substance: LORAZEPAM
  8. HYDROXYZINE HYDROCHLORIDE [Concomitant]
     Active Substance: HYDROXYZINE HYDROCHLORIDE
  9. OPZELURA [Concomitant]
     Active Substance: RUXOLITINIB PHOSPHATE
  10. GABAPENTIN [Concomitant]
     Active Substance: GABAPENTIN

REACTIONS (2)
  - Infection [Not Recovered/Not Resolved]
  - Blood cholesterol increased [Not Recovered/Not Resolved]
